FAERS Safety Report 10210915 (Version 1)
Quarter: 2014Q2

REPORT INFORMATION
  Report Type: Spontaneous
  Country: TR (occurrence: TR)
  Receive Date: 20140602
  Receipt Date: 20140602
  Transmission Date: 20141212
  Serious: Yes (Other)
  Sender: FDA-Public Use
  Company Number: TR-PFIZER INC-2014146663

PATIENT
  Sex: 0

DRUGS (4)
  1. LUSTRAL [Suspect]
     Dosage: 100 MG, UNK
  2. LYRICA [Suspect]
     Dosage: 150 MG, UNK
  3. OLNEGIS [Suspect]
     Dosage: 10 MG, UNK
  4. STILIZAN [Suspect]
     Dosage: 10 MG, UNK

REACTIONS (2)
  - Balance disorder [Unknown]
  - Weight increased [Unknown]
